FAERS Safety Report 15239032 (Version 1)
Quarter: 2018Q3

REPORT INFORMATION
  Report Type: Spontaneous
  Country: US (occurrence: US)
  Receive Date: 20180803
  Receipt Date: 20180803
  Transmission Date: 20181010
  Serious: No
  Sender: FDA-Public Use
  Company Number: US-BAYER-2018-141330

PATIENT
  Age: 56 Year
  Weight: 113.38 kg

DRUGS (1)
  1. ALEVE [Suspect]
     Active Substance: NAPROXEN SODIUM
     Indication: GOUT
     Dosage: DAILY DOSE 2 DF
     Route: 048
     Dates: start: 20180723

REACTIONS (3)
  - Product use in unapproved indication [Unknown]
  - Product use complaint [None]
  - Drug effective for unapproved indication [Unknown]
